FAERS Safety Report 5091744-X (Version None)
Quarter: 2006Q3

REPORT INFORMATION
  Report Type: 
  Country: None (occurrence: None)
  Receive Date: 20060829
  Receipt Date: 20060502
  Transmission Date: 20061208
  Serious: No
  Sender: FDA-Public Use
  Company Number: US-BRISTOL-MYERS SQUIBB COMPANY-13364427

PATIENT
  Age: 89 Year
  Sex: Female

DRUGS (6)
  1. ERBITUX [Suspect]
     Indication: NEOPLASM MALIGNANT
     Route: 042
     Dates: start: 20060502, end: 20060502
  2. NORVASC [Concomitant]
  3. ASPIRIN [Concomitant]
  4. AVALIDE [Concomitant]
  5. DIGITEK [Concomitant]
  6. TYLENOL [Concomitant]

REACTIONS (1)
  - DRUG ADMINISTRATION ERROR [None]
